FAERS Safety Report 8551988-9 (Version None)
Quarter: 2012Q3

REPORT INFORMATION
  Report Type: 
  Country: None (occurrence: None)
  Receive Date: 20120730
  Receipt Date: 20120726
  Transmission Date: 20120928
  Serious: Yes (Hospitalization)
  Sender: FDA-Public Use
  Company Number: CA-TEVA-350632USA

PATIENT
  Age: 72 Year
  Sex: Male

DRUGS (3)
  1. PRISTIQ [Concomitant]
     Indication: DEPRESSION
     Dosage: 100 MILLIGRAM;
     Route: 048
  2. AZILECT [Suspect]
     Indication: PARKINSON'S DISEASE
     Dosage: .5 MICROGRAM;
     Route: 048
     Dates: start: 20120301
  3. CLOZARIL [Concomitant]
     Indication: PARKINSON'S DISEASE
     Dosage: 25 MILLIGRAM;
     Route: 048

REACTIONS (1)
  - DELIRIUM [None]
